FAERS Safety Report 5403457-2 (Version None)
Quarter: 2007Q3

REPORT INFORMATION
  Report Type: 
  Country: None (occurrence: None)
  Receive Date: 20070730
  Receipt Date: 20070713
  Transmission Date: 20080115
  Serious: Yes (Other)
  Sender: FDA-Public Use
  Company Number: 2005JP002353

PATIENT
  Age: 47 Year
  Sex: Female

DRUGS (6)
  1. PROGRAF [Suspect]
     Indication: RENAL TRANSPLANT
     Dates: start: 20040101
  2. MYCOPHENOLATE MOFETIL (MYCOPHENOLATE MOFETIL) UNKNOWN [Suspect]
     Indication: RENAL TRANSPLANT
     Dates: start: 20040101, end: 20050101
  3. PREDNISOLONE [Concomitant]
  4. RITUXIMAB (RITUXIMAB) UNKNOWN [Suspect]
     Indication: KIDNEY TRANSPLANT REJECTION
     Dosage: 150 MG/M2, /D
     Dates: start: 20040911, end: 20040911
  5. RITUXIMAB (RITUXIMAB) UNKNOWN [Suspect]
     Indication: KIDNEY TRANSPLANT REJECTION
     Dosage: 150 MG/M2, /D
     Dates: start: 20040914, end: 20040914
  6. BASILIXIMAB (BASILIXIMAB) UNKNOWN [Concomitant]

REACTIONS (8)
  - AGRANULOCYTOSIS [None]
  - B-LYMPHOCYTE COUNT DECREASED [None]
  - CYTOMEGALOVIRUS INFECTION [None]
  - DIALYSIS [None]
  - HYPOGAMMAGLOBULINAEMIA [None]
  - KIDNEY TRANSPLANT REJECTION [None]
  - MYELOID MATURATION ARREST [None]
  - NO THERAPEUTIC RESPONSE [None]
